FAERS Safety Report 9778106 (Version 1)
Quarter: 2013Q4

REPORT INFORMATION
  Report Type: Report from Study
  Country: AU (occurrence: AU)
  Receive Date: 20131223
  Receipt Date: 20131223
  Transmission Date: 20140711
  Serious: Yes (Other)
  Sender: FDA-Public Use
  Company Number: PHHY2013AU147508

PATIENT
  Sex: Male

DRUGS (2)
  1. CLOZARIL [Suspect]
     Dosage: UNK
     Dates: start: 20121024
  2. CLOZARIL [Suspect]
     Dosage: UNK
     Dates: end: 20131206

REACTIONS (2)
  - Suicide attempt [Unknown]
  - Overdose [Unknown]
